FAERS Safety Report 16007875 (Version 6)
Quarter: 2022Q4

REPORT INFORMATION
  Report Type: Spontaneous
  Country: JP (occurrence: JP)
  Receive Date: 20190226
  Receipt Date: 20221014
  Transmission Date: 20230113
  Serious: Yes (Hospitalization, Other)
  Sender: FDA-Public Use
  Company Number: JP-PFIZER INC-2019078250

PATIENT
  Age: 71 Year
  Sex: Male

DRUGS (1)
  1. LORBRENA [Suspect]
     Active Substance: LORLATINIB
     Dosage: 100 MG, DAILY
     Route: 048

REACTIONS (3)
  - Pneumonia [Not Recovered/Not Resolved]
  - Fall [Recovered/Resolved]
  - Cognitive disorder [Not Recovered/Not Resolved]
